FAERS Safety Report 15835829 (Version 1)
Quarter: 2019Q1

REPORT INFORMATION
  Report Type: Spontaneous
  Country: US (occurrence: US)
  Receive Date: 20190117
  Receipt Date: 20190117
  Transmission Date: 20190417
  Serious: Yes (Other)
  Sender: FDA-Public Use
  Company Number: US-LUPIN PHARMACEUTICALS INC.-2019-00067

PATIENT
  Age: 49 Year
  Sex: Female

DRUGS (5)
  1. METRONIDAZOLE. [Suspect]
     Active Substance: METRONIDAZOLE
     Dosage: UNK
     Route: 048
  2. METRONIDAZOLE. [Suspect]
     Active Substance: METRONIDAZOLE
     Indication: TRICHOMONIASIS
     Dosage: UNK
     Route: 048
  3. TINIDAZOLE. [Concomitant]
     Active Substance: TINIDAZOLE
     Dosage: 500 MG, TID
     Route: 065
  4. TINIDAZOLE. [Concomitant]
     Active Substance: TINIDAZOLE
     Indication: TRICHOMONIASIS
     Dosage: UNK
     Route: 048
  5. TINIDAZOLE. [Concomitant]
     Active Substance: TINIDAZOLE
     Dosage: 2 G, QD
     Route: 048

REACTIONS (1)
  - Drug resistance [Unknown]
